FAERS Safety Report 11278640 (Version 1)
Quarter: 2015Q3

REPORT INFORMATION
  Report Type: Spontaneous
  Country: US (occurrence: US)
  Receive Date: 20150717
  Receipt Date: 20150717
  Transmission Date: 20151125
  Serious: Yes (Death, Life-Threatening)
  Sender: FDA-Public Use
  Company Number: US-HOSPIRA-2931785

PATIENT

DRUGS (1)
  1. EPINEPHRINE. [Suspect]
     Active Substance: EPINEPHRINE
     Indication: PRODUCT USED FOR UNKNOWN INDICATION
     Route: 042
     Dates: start: 20150626

REACTIONS (4)
  - Drug dose omission [Unknown]
  - Product substitution issue [Unknown]
  - Product packaging confusion [Unknown]
  - Death [Fatal]

NARRATIVE: CASE EVENT DATE: 20150626
